FAERS Safety Report 24697270 (Version 3)
Quarter: 2025Q1

REPORT INFORMATION
  Report Type: Spontaneous
  Country: JP (occurrence: JP)
  Receive Date: 20241204
  Receipt Date: 20250110
  Transmission Date: 20250408
  Serious: Yes (Death, Life-Threatening)
  Sender: BAYER HEALTHCARE PHARMACEUTICALS INC.
  Company Number: JP-BAYER-2024A129585

PATIENT
  Age: 78 Year
  Sex: Male

DRUGS (2)
  1. IOPROMIDE [Suspect]
     Active Substance: IOPROMIDE
     Indication: Scan with contrast
     Route: 042
     Dates: start: 20240909, end: 20240909
  2. IOPROMIDE [Suspect]
     Active Substance: IOPROMIDE
     Indication: Rectal cancer

REACTIONS (14)
  - Shock symptom [Fatal]
  - Loss of consciousness [Fatal]
  - Vomiting [Fatal]
  - Acidosis [Fatal]
  - Blood pressure decreased [Fatal]
  - General physical health deterioration [Fatal]
  - Altered state of consciousness [Fatal]
  - Unresponsive to stimuli [Fatal]
  - Respiratory arrest [Fatal]
  - Cardio-respiratory arrest [Fatal]
  - Asphyxia [Fatal]
  - Carotid pulse abnormal [Fatal]
  - Cyanosis [Fatal]
  - Contrast media allergy [Fatal]

NARRATIVE: CASE EVENT DATE: 20240909
